FAERS Safety Report 9165718 (Version 3)
Quarter: 2013Q3

REPORT INFORMATION
  Report Type: Spontaneous
  Country: US (occurrence: None)
  Receive Date: 20130228
  Receipt Date: 20130929
  Transmission Date: 20140515
  Serious: Yes (Other)
  Sender: FDA-Public Use
  Company Number: JPI-P-029934

PATIENT
  Age: 10 Year
  Sex: Female

DRUGS (1)
  1. XYREM [Suspect]
     Indication: CATAPLEXY
     Dosage: 4.5 GM (2.25 GM, 2 IN 1 D), ORAL
     Route: 048
     Dates: start: 20121221

REACTIONS (7)
  - Dyspnoea [None]
  - Dyspnoea [None]
  - Fall [None]
  - Respiratory rate increased [None]
  - Depressed level of consciousness [None]
  - Incorrect dose administered [None]
  - Loss of consciousness [None]
